FAERS Safety Report 6589884-9 (Version None)
Quarter: 2010Q1

REPORT INFORMATION
  Report Type: 
  Country: None (occurrence: None)
  Receive Date: 20100212
  Receipt Date: 20100127
  Transmission Date: 20100710
  Serious: Yes (Other)
  Sender: FDA-Public Use
  Company Number: 2009-5136

PATIENT
  Age: 46 Year
  Sex: Male
  Weight: 72.6 kg

DRUGS (2)
  1. DYSPORT [Suspect]
     Indication: SKIN WRINKLING
     Dosage: 40 UNITS, SINGLE CYCLE, INTRAMUSCULAR
     Dates: start: 20091209, end: 20091209
  2. TOPROL-XL [Concomitant]

REACTIONS (10)
  - ASTHMA [None]
  - COUGH [None]
  - DYSPNOEA [None]
  - NAIL DISCOLOURATION [None]
  - OXYGEN SATURATION DECREASED [None]
  - RASH [None]
  - SKIN DISCOLOURATION [None]
  - SNEEZING [None]
  - SWELLING FACE [None]
  - URTICARIA [None]
